FAERS Safety Report 4318249-5 (Version None)
Quarter: 2004Q1

REPORT INFORMATION
  Report Type: 
  Country: None (occurrence: None)
  Receive Date: 20040317
  Receipt Date: 20040309
  Transmission Date: 20041129
  Serious: Yes (Hospitalization, Other)
  Sender: FDA-Public Use
  Company Number: DE-BRISTOL-MYERS SQUIBB COMPANY-12528261

PATIENT
  Age: 74 Year
  Sex: Male

DRUGS (1)
  1. PRAVASIN [Suspect]
     Indication: HYPERCHOLESTEROLAEMIA

REACTIONS (3)
  - AORTIC ATHEROSCLEROSIS [None]
  - CHOLELITHIASIS [None]
  - PANCREATITIS [None]
